FAERS Safety Report 21818828 (Version 1)
Quarter: 2023Q1

REPORT INFORMATION
  Report Type: Spontaneous
  Country: ES (occurrence: ES)
  Receive Date: 20230104
  Receipt Date: 20230104
  Transmission Date: 20230418
  Serious: Yes (Other)
  Sender: FDA-Public Use
  Company Number: None

PATIENT
  Age: 82 Year
  Sex: Male

DRUGS (9)
  1. ATORVASTATIN [Suspect]
     Active Substance: ATORVASTATIN
     Indication: Ischaemic stroke
     Dosage: 80 MILLIGRAM, QD
     Route: 048
     Dates: start: 20220622, end: 20220901
  2. ARIPIPRAZOLE [Suspect]
     Active Substance: ARIPIPRAZOLE
     Indication: Agitation
     Dosage: 4.5 MILLIGRAM, 1 TOTAL
     Route: 030
     Dates: start: 20220821, end: 20220821
  3. CLONAZEPAM [Suspect]
     Active Substance: CLONAZEPAM
     Indication: Agitation
     Dosage: 0.5 MILLIGRAM, 2 DAYS, 3 TOTAL
     Route: 030
     Dates: start: 20220820, end: 20220821
  4. LACOSAMIDE [Suspect]
     Active Substance: LACOSAMIDE
     Indication: Agitation
     Dosage: 100 MILLIGRAM, 12 HOURS
     Route: 048
     Dates: start: 20220818, end: 20220826
  5. ASPIRIN [Concomitant]
     Active Substance: ASPIRIN
     Indication: Ischaemic cardiomyopathy
     Dosage: 300 MILLIGRAM, QD
     Route: 048
     Dates: start: 20220726
  6. ENOXAPARIN SODIUM [Concomitant]
     Active Substance: ENOXAPARIN SODIUM
     Indication: Ischaemic stroke
     Dosage: 40 MILLIGRAM, QD
     Route: 058
     Dates: start: 20220818
  7. PANTOPRAZOLE [Concomitant]
     Active Substance: PANTOPRAZOLE
     Indication: Gastritis prophylaxis
     Dosage: 40 MILLIGRAM, QD
     Route: 048
     Dates: start: 20220812
  8. CARBAMAZEPINE [Concomitant]
     Active Substance: CARBAMAZEPINE
     Dosage: 200 MILLIGRAM, Q8H
     Route: 048
     Dates: start: 2021, end: 20220905
  9. CLOPIDOGREL [Concomitant]
     Active Substance: CLOPIDOGREL BISULFATE
     Indication: Cerebrovascular accident prophylaxis
     Dosage: 75 MILLIGRAM, QD
     Route: 048
     Dates: start: 20220726

REACTIONS (1)
  - Hepatitis cholestatic [Recovering/Resolving]

NARRATIVE: CASE EVENT DATE: 20220824
